FAERS Safety Report 5962043-6 (Version None)
Quarter: 2008Q4

REPORT INFORMATION
  Report Type: 
  Country: None (occurrence: None)
  Receive Date: 20081121
  Receipt Date: 20081111
  Transmission Date: 20090506
  Serious: Yes (Other)
  Sender: FDA-Public Use
  Company Number: PHHY2008JP19724

PATIENT
  Age: 60 Year
  Sex: Female

DRUGS (2)
  1. LOCHOL [Suspect]
     Indication: LIPIDS ABNORMAL
     Dosage: 20 MG, QD
     Route: 048
     Dates: start: 20080620, end: 20080703
  2. LOCHOL [Suspect]
     Dosage: 30 MG, QD
     Route: 048
     Dates: start: 20080704, end: 20080718

REACTIONS (3)
  - ALANINE AMINOTRANSFERASE ABNORMAL [None]
  - ASPARTATE AMINOTRANSFERASE ABNORMAL [None]
  - HEPATIC FUNCTION ABNORMAL [None]
